FAERS Safety Report 22624411 (Version 9)
Quarter: 2024Q1

REPORT INFORMATION
  Report Type: Spontaneous
  Country: US (occurrence: US)
  Receive Date: 20230621
  Receipt Date: 20240308
  Transmission Date: 20240410
  Serious: No
  Sender: FDA-Public Use
  Company Number: US-PFIZER INC-PV202300105815

PATIENT
  Age: 38 Year
  Sex: Female
  Weight: 113.38 kg

DRUGS (1)
  1. GENOTROPIN [Suspect]
     Active Substance: SOMATROPIN
     Indication: Postpartum hypopituitarism
     Dosage: 0.6 MG
     Dates: start: 20080901, end: 2023

REACTIONS (8)
  - Off label use [Unknown]
  - Incorrect dose administered by device [Unknown]
  - Wrong technique in device usage process [Unknown]
  - Device breakage [Unknown]
  - Device issue [Unknown]
  - Product supply issue [Unknown]
  - Therapy interrupted [Unknown]
  - Cardiac disorder [Unknown]

NARRATIVE: CASE EVENT DATE: 20080901
